FAERS Safety Report 5247520-8 (Version None)
Quarter: 2007Q1

REPORT INFORMATION
  Report Type: 
  Country: None (occurrence: None)
  Receive Date: 20070227
  Receipt Date: 20070216
  Transmission Date: 20070707
  Serious: Yes (Other)
  Sender: FDA-Public Use
  Company Number: US-ELI_LILLY_AND_COMPANY-US200702003455

PATIENT
  Age: 75 Year
  Sex: Female

DRUGS (5)
  1. FORTEO [Suspect]
     Indication: OSTEOPOROSIS
     Dates: start: 20050926
  2. AVALIDE [Concomitant]
  3. PREMARIN VAGINAL [Concomitant]
  4. RESTASIS [Concomitant]
  5. MULTI-VITAMIN [Concomitant]

REACTIONS (2)
  - CHRONIC LYMPHOCYTIC LEUKAEMIA [None]
  - DIABETES MELLITUS [None]
